FAERS Safety Report 4945355-4 (Version None)
Quarter: 2006Q1

REPORT INFORMATION
  Report Type: 
  Country: None (occurrence: None)
  Receive Date: 20060315
  Receipt Date: 20060315
  Transmission Date: 20060701
  Serious: Yes (Life-Threatening, Hospitalization)
  Sender: FDA-Public Use
  Company Number: None

PATIENT
  Age: 81 Year
  Sex: Male
  Weight: 77 kg

DRUGS (1)
  1. CLINDAMYCIN [Suspect]
     Indication: ROSACEA
     Dosage: PO  BID
     Route: 048
     Dates: start: 20050711, end: 20050802

REACTIONS (2)
  - DIARRHOEA [None]
  - X-RAY ABNORMAL [None]
